FAERS Safety Report 10557362 (Version 3)
Quarter: 2015Q1

REPORT INFORMATION
  Report Type: Spontaneous
  Country: GB (occurrence: GB)
  Receive Date: 20141031
  Receipt Date: 20150325
  Transmission Date: 20150720
  Serious: Yes (Life-Threatening, Hospitalization, Congenital Anomaly, Other)
  Sender: FDA-Public Use
  Company Number: GB-ACTAVIS-2014-23105

PATIENT
  Age: 18 Month
  Sex: Female

DRUGS (2)
  1. PARACETAMOL  (UNKNOWN) [Suspect]
     Active Substance: ACETAMINOPHEN
     Indication: PELVIC PAIN
     Dosage: UNK
     Route: 064
  2. COCODAMOL [Suspect]
     Active Substance: ACETAMINOPHEN\CODEINE PHOSPHATE
     Indication: PELVIC PAIN
     Dosage: UNK UNK, QID
     Route: 064

REACTIONS (12)
  - Hepatotoxicity [Recovered/Resolved]
  - Developmental delay [Not Recovered/Not Resolved]
  - Foetal exposure during pregnancy [Recovered/Resolved with Sequelae]
  - Malaise [Unknown]
  - Tremor [Unknown]
  - Hepatic function abnormal [Unknown]
  - Abasia [Unknown]
  - Aphasia [Unknown]
  - Dependence [Recovered/Resolved]
  - Jaundice [Recovered/Resolved]
  - Foetal arrhythmia [Recovered/Resolved]
  - Premature baby [Unknown]
